FAERS Safety Report 15478425 (Version 2)
Quarter: 2018Q4

REPORT INFORMATION
  Report Type: Spontaneous
  Country: IT (occurrence: IT)
  Receive Date: 20181009
  Receipt Date: 20181017
  Transmission Date: 20190205
  Serious: Yes (Hospitalization, Other)
  Sender: FDA-Public Use
  Company Number: IT-PFIZER INC-2018400238

PATIENT
  Age: 55 Year
  Sex: Male
  Weight: 110 kg

DRUGS (10)
  1. PREGABALIN. [Suspect]
     Active Substance: PREGABALIN
     Dosage: 100 MG, 1X/DAY
     Dates: start: 20130101
  2. DELORAZEPAM [Concomitant]
     Active Substance: DELORAZEPAM
     Dosage: 3 MG, 1X/DAY
     Dates: start: 20050101
  3. CARDIOASPIRIN [Concomitant]
     Active Substance: ASPIRIN
     Dosage: 100 MG, 1X/DAY
     Dates: start: 20000101
  4. DEPAKIN [Concomitant]
     Active Substance: VALPROATE SODIUM
     Dosage: 450 MG, 1X/DAY
     Dates: start: 20040101
  5. CYTOTEC [Concomitant]
     Active Substance: MISOPROSTOL
     Dosage: UNK
  6. REVINTY ELLIPTA [Concomitant]
     Active Substance: FLUTICASONE FUROATE\VILANTEROL TRIFENATATE
     Indication: CHRONIC OBSTRUCTIVE PULMONARY DISEASE
     Dosage: UNK
  7. SPIRIVA [Concomitant]
     Active Substance: TIOTROPIUM BROMIDE MONOHYDRATE
     Indication: CHRONIC OBSTRUCTIVE PULMONARY DISEASE
     Dosage: UNK
  8. CORLENTOR [Concomitant]
     Active Substance: IVABRADINE HYDROCHLORIDE
     Dosage: 10 MG, 1X/DAY
     Dates: start: 20180101
  9. NORITREN [Suspect]
     Active Substance: NORTRIPTYLINE HYDROCHLORIDE
     Indication: BIPOLAR DISORDER
     Dosage: 45 MG, 1X/DAY
     Dates: start: 20060101
  10. SIVASTIN [Concomitant]
     Active Substance: SIMVASTATIN
     Dosage: 20 MG, 1X/DAY
     Dates: start: 20000101

REACTIONS (6)
  - Chest pain [Not Recovered/Not Resolved]
  - Palpitations [Not Recovered/Not Resolved]
  - Conduction disorder [Unknown]
  - Acute myocardial infarction [Not Recovered/Not Resolved]
  - Supraventricular tachycardia [Not Recovered/Not Resolved]
  - Coronary artery occlusion [Unknown]

NARRATIVE: CASE EVENT DATE: 20180912
